FAERS Safety Report 6639266-6 (Version None)
Quarter: 2010Q1

REPORT INFORMATION
  Report Type: 
  Country: None (occurrence: None)
  Receive Date: 20100315
  Receipt Date: 20100302
  Transmission Date: 20100710
  Serious: Yes (Other)
  Sender: FDA-Public Use
  Company Number: 232247J10USA

PATIENT
  Age: 64 Year
  Sex: Female

DRUGS (3)
  1. REBIF [Suspect]
     Indication: MULTIPLE SCLEROSIS
     Dosage: 22 MCG, 3 IN 1 WEEKS, NOT REPORTED; 11 MCG, 3 IN 1 WEEKS, NOT REPORTED
     Dates: start: 20100126, end: 20100101
  2. REBIF [Suspect]
     Indication: MULTIPLE SCLEROSIS
     Dosage: 22 MCG, 3 IN 1 WEEKS, NOT REPORTED; 11 MCG, 3 IN 1 WEEKS, NOT REPORTED
     Dates: start: 20100302
  3. KLONOPIN [Concomitant]

REACTIONS (3)
  - DEPRESSION [None]
  - INSOMNIA [None]
  - SUICIDAL IDEATION [None]
